FAERS Safety Report 16678354 (Version 1)
Quarter: 2019Q3

REPORT INFORMATION
  Report Type: Spontaneous
  Country: JP (occurrence: JP)
  Receive Date: 20190807
  Receipt Date: 20190807
  Transmission Date: 20191004
  Serious: Yes (Other)
  Sender: FDA-Public Use
  Company Number: JP-ROCHE-2373788

PATIENT
  Age: 8 Decade
  Sex: Female

DRUGS (3)
  1. HERCEPTIN [Suspect]
     Active Substance: TRASTUZUMAB
     Indication: BREAST CANCER
     Route: 041
  2. KADCYLA [Suspect]
     Active Substance: ADO-TRASTUZUMAB EMTANSINE
     Indication: BREAST CANCER
     Route: 041
  3. PERJETA [Suspect]
     Active Substance: PERTUZUMAB
     Indication: BREAST CANCER
     Dosage: 420MG/14ML
     Route: 041

REACTIONS (3)
  - Diarrhoea [Recovered/Resolved]
  - Bone marrow failure [Unknown]
  - Pyrexia [Unknown]
